FAERS Safety Report 11810444 (Version 1)
Quarter: 2015Q4

REPORT INFORMATION
  Report Type: Spontaneous
  Country: US (occurrence: None)
  Receive Date: 20151207
  Receipt Date: 20151207
  Transmission Date: 20160305
  Serious: Yes (Other)
  Sender: FDA-Public Use
  Company Number: None

PATIENT
  Age: 64 Year
  Sex: Male
  Weight: 97.52 kg

DRUGS (20)
  1. MULTI VIT [Concomitant]
  2. ASPRIN [Concomitant]
     Active Substance: ASPIRIN
  3. ATENOLOL. [Suspect]
     Active Substance: ATENOLOL
     Indication: HYPERTENSION
     Dosage: 1 PILL
     Route: 048
     Dates: start: 20151022, end: 20151204
  4. SIMVASTATIN. [Concomitant]
     Active Substance: SIMVASTATIN
  5. NASACORT [Concomitant]
     Active Substance: TRIAMCINOLONE ACETONIDE
  6. STOOL SOFTENER [Concomitant]
     Active Substance: DOCUSATE CALCIUM
  7. MELATONIN [Concomitant]
     Active Substance: MELATONIN
  8. TIZANIDINE. [Concomitant]
     Active Substance: TIZANIDINE
  9. FISH OIL [Concomitant]
     Active Substance: FISH OIL
  10. SALINE NASAL SPRAY [Concomitant]
     Active Substance: SODIUM CHLORIDE
  11. GINKGO BIL [Concomitant]
  12. TYLENOL PM [Concomitant]
     Active Substance: ACETAMINOPHEN\DIPHENHYDRAMINE
  13. ATENOLOL. [Suspect]
     Active Substance: ATENOLOL
     Indication: PALPITATIONS
     Dosage: 1 PILL
     Route: 048
     Dates: start: 20151022, end: 20151204
  14. CLONDINE [Concomitant]
  15. GLUCOSAMINE CHONDROITIN [Concomitant]
     Active Substance: CHONDROITIN SULFATE (BOVINE)\GLUCOSAMINE HYDROCHLORIDE
  16. IBUPROFIN [Concomitant]
  17. ANTLER VELVET [Concomitant]
  18. URINOZINC [Concomitant]
  19. CHROMIUM PICOLINATE [Concomitant]
     Active Substance: CHROMIUM PICOLINATE
  20. ALLERGY RELIEF [Concomitant]

REACTIONS (5)
  - Headache [None]
  - Product quality issue [None]
  - Blood pressure increased [None]
  - Product physical issue [None]
  - Product substitution issue [None]

NARRATIVE: CASE EVENT DATE: 20151203
